FAERS Safety Report 5001610-3 (Version None)
Quarter: 2006Q2

REPORT INFORMATION
  Report Type: 
  Country: None (occurrence: None)
  Receive Date: 20060515
  Receipt Date: 20050525
  Transmission Date: 20061013
  Serious: Yes (Other)
  Sender: FDA-Public Use
  Company Number: PHBS2005CA07481

PATIENT
  Age: 57 Year
  Sex: Female

DRUGS (3)
  1. ZOMETA [Suspect]
     Indication: OSTEOPOROSIS
     Dosage: 4 MG, QMO
     Route: 042
     Dates: start: 20021013, end: 20050228
  2. CALCIUM GLUCONATE [Concomitant]
     Route: 065
  3. VITAMIN D [Concomitant]
     Route: 065

REACTIONS (12)
  - ACTINOMYCOSIS [None]
  - BACTERIAL INFECTION [None]
  - FUNGAL INFECTION [None]
  - GRANULOMA [None]
  - HYPERPLASIA [None]
  - INFLAMMATION [None]
  - OSTEOMYELITIS [None]
  - OSTEONECROSIS [None]
  - PAIN IN JAW [None]
  - TOOTH ABSCESS [None]
  - TOOTH EXTRACTION [None]
  - TOOTHACHE [None]
